FAERS Safety Report 9497749 (Version 1)
Quarter: 2013Q3

REPORT INFORMATION
  Report Type: Spontaneous
  Country: US (occurrence: None)
  Receive Date: 20130903
  Receipt Date: 20130903
  Transmission Date: 20140515
  Serious: No
  Sender: FDA-Public Use
  Company Number: None

PATIENT
  Age: 35 Year
  Sex: Female
  Weight: 50.8 kg

DRUGS (1)
  1. PREDNISONE [Suspect]
     Indication: FOOD ALLERGY
     Dosage: 20MGX3-4 D, ?20MGX2-3D
     Route: 048
     Dates: start: 20130817, end: 20130827

REACTIONS (14)
  - Paraesthesia [None]
  - Muscle tightness [None]
  - Back pain [None]
  - Vision blurred [None]
  - Dizziness [None]
  - Confusional state [None]
  - Hypertension [None]
  - Nausea [None]
  - Diarrhoea [None]
  - Pain in jaw [None]
  - Hypoaesthesia [None]
  - Paraesthesia oral [None]
  - Abdominal pain upper [None]
  - Diplopia [None]
